FAERS Safety Report 14911352 (Version 3)
Quarter: 2018Q4

REPORT INFORMATION
  Report Type: Report from Study
  Country: JP (occurrence: JP)
  Receive Date: 20180518
  Receipt Date: 20181017
  Transmission Date: 20190204
  Serious: Yes (Death, Hospitalization)
  Sender: FDA-Public Use
  Company Number: JP-AMGEN-JPNCT2018067622

PATIENT
  Age: 69 Year
  Sex: Male
  Weight: 63 kg

DRUGS (45)
  1. DARBEPOETIN ALFA [Suspect]
     Active Substance: DARBEPOETIN ALFA
     Dosage: 240 MUG, QWK
     Route: 058
     Dates: start: 20170601, end: 20170803
  2. EXJADE [Concomitant]
     Active Substance: DEFERASIROX
     Dosage: 375 MG, UNK
     Route: 048
     Dates: start: 20170713, end: 20170720
  3. ROPION [Concomitant]
     Active Substance: FLURBIPROFEN AXETIL
     Indication: PYREXIA
     Dosage: 50 MG
     Route: 042
     Dates: start: 20171010, end: 20171010
  4. EXJADE [Concomitant]
     Active Substance: DEFERASIROX
     Dosage: 1000 MG, UNK
     Route: 048
     Dates: start: 20170817, end: 20170828
  5. MAXIPIME [Concomitant]
     Active Substance: CEFEPIME HYDROCHLORIDE
     Indication: PYREXIA
     Dosage: 3 G, UNK
     Route: 042
     Dates: start: 20170724, end: 20170728
  6. CANCIDAS [Concomitant]
     Active Substance: CASPOFUNGIN ACETATE
     Indication: PYREXIA
     Dosage: 70 MG
     Route: 042
     Dates: start: 20170902, end: 20170902
  7. DARBEPOETIN ALFA [Suspect]
     Active Substance: DARBEPOETIN ALFA
     Indication: MYELODYSPLASTIC SYNDROME
     Dosage: 240 MUG, QWK
     Route: 058
     Dates: start: 20170511, end: 20170518
  8. POVIDONE-IODINE. [Concomitant]
     Active Substance: POVIDONE-IODINE
     Indication: INFECTION PROPHYLAXIS
     Dosage: ADEQUATE DOSE, UNK
     Route: 049
     Dates: start: 20170518
  9. LOXONIN [Concomitant]
     Active Substance: LOXOPROFEN SODIUM
     Indication: OSTEOARTHRITIS
     Dosage: ADEQUATE DOSE, UNK
     Route: 061
     Dates: start: 20170522, end: 20170817
  10. PREDNISOLONE. [Concomitant]
     Active Substance: PREDNISOLONE
     Indication: PROPHYLAXIS
     Dosage: 10 MG, UNK
     Route: 048
     Dates: start: 20170622, end: 20170629
  11. ROZEREM [Concomitant]
     Active Substance: RAMELTEON
     Indication: INSOMNIA
     Dosage: 8 MG, UNK
     Route: 048
     Dates: start: 20170629, end: 20170721
  12. CIPROXAN [Concomitant]
     Active Substance: CIPROFLOXACIN
     Indication: PYREXIA
     Dosage: 600 MG, UNK
     Route: 048
     Dates: start: 20170729, end: 20170803
  13. OLOPATADINE HYDROCHLORIDE. [Concomitant]
     Active Substance: OLOPATADINE HYDROCHLORIDE
     Indication: PRURITUS
     Dosage: 10 MG, UNK
     Route: 048
     Dates: start: 20170803, end: 20170817
  14. SAXIZON [Concomitant]
     Active Substance: HYDROCORTISONE SODIUM SUCCINATE
     Dosage: 100 MG
     Route: 042
     Dates: start: 20170810, end: 20170811
  15. CALONAL [Concomitant]
     Active Substance: ACETAMINOPHEN
     Indication: PYREXIA
     Dosage: 400 MG, AS NECESSARY (PRN)
     Route: 048
     Dates: start: 20170518
  16. FEBURIC [Concomitant]
     Active Substance: FEBUXOSTAT
     Indication: GOUT
     Dosage: 10 MG, UNK
     Route: 048
  17. CRAVIT [Concomitant]
     Active Substance: LEVOFLOXACIN
     Dosage: 500 MG, UNK
     Route: 048
     Dates: start: 20170722, end: 20170723
  18. LUNESTA [Concomitant]
     Active Substance: ESZOPICLONE
     Indication: INSOMNIA
     Dosage: 2 G, UNK
     Route: 048
     Dates: start: 20170529, end: 20170628
  19. OLOPATADINE HYDROCHLORIDE. [Concomitant]
     Active Substance: OLOPATADINE HYDROCHLORIDE
     Indication: PRURITUS
     Dosage: 10 MG, UNK
     Route: 048
     Dates: start: 20170909
  20. MAXIPIME [Concomitant]
     Active Substance: CEFEPIME HYDROCHLORIDE
     Dosage: 3 G, UNK
     Route: 042
     Dates: start: 20171009, end: 20171011
  21. CANCIDAS [Concomitant]
     Active Substance: CASPOFUNGIN ACETATE
     Dosage: 50 MG
     Route: 042
     Dates: start: 20170903, end: 20170909
  22. FLUCONAZOLE. [Concomitant]
     Active Substance: FLUCONAZOLE
     Dosage: 400 MG, UNK
     Route: 042
     Dates: start: 20170911, end: 20170923
  23. SODIUM RABEPRAZOLE [Concomitant]
     Active Substance: RABEPRAZOLE SODIUM
     Indication: GASTRITIS PROPHYLAXIS
     Dosage: 10 MG, UNK
     Route: 048
     Dates: start: 20170804
  24. CRAVIT [Concomitant]
     Active Substance: LEVOFLOXACIN
     Indication: PYREXIA
     Dosage: 500 MG, UNK
     Route: 048
     Dates: start: 20170519, end: 20170601
  25. S.M. [Concomitant]
     Indication: GASTRITIS PROPHYLAXIS
     Dosage: 3.9 G, UNK
     Route: 048
     Dates: start: 20170529, end: 20170628
  26. RESTAMIN [Concomitant]
     Active Substance: DIPHENHYDRAMINE
     Indication: PRURITUS
     Dosage: UNK
     Route: 061
     Dates: start: 20170909, end: 20170920
  27. SAXIZON [Concomitant]
     Active Substance: HYDROCORTISONE SODIUM SUCCINATE
     Indication: ALLERGY PROPHYLAXIS
     Dosage: 100 MG
     Route: 042
     Dates: start: 20170803, end: 20170803
  28. STRONGER NEO-MINOPHAGEN C [Concomitant]
     Active Substance: AMMONIUM GLYCYRRHIZATE\CYSTEINE HYDROCHLORIDE\GLYCINE
     Indication: RASH
     Dosage: 20 ML, UNK
     Route: 042
     Dates: start: 20170909, end: 20170909
  29. DARBEPOETIN ALFA [Suspect]
     Active Substance: DARBEPOETIN ALFA
     Dosage: 240 MUG, QWK
     Route: 058
     Dates: start: 20170817, end: 20170831
  30. EXJADE [Concomitant]
     Active Substance: DEFERASIROX
     Indication: IRON OVERLOAD
     Dosage: 125 MG, UNK
     Route: 048
     Dates: start: 20170622, end: 20170628
  31. EXJADE [Concomitant]
     Active Substance: DEFERASIROX
     Dosage: 500 MG, UNK
     Route: 048
     Dates: start: 20170721, end: 20170806
  32. BELSOMRA [Concomitant]
     Active Substance: SUVOREXANT
     Indication: INSOMNIA
     Dosage: 15 MG, UNK
     Route: 048
     Dates: start: 20170629, end: 20170706
  33. ITRIZOLE [Concomitant]
     Active Substance: ITRACONAZOLE
     Indication: INFECTION PROPHYLAXIS
     Dosage: 15 ML, UNK
     Route: 048
     Dates: start: 20170729, end: 20170803
  34. CEFTRIAXONE SODIUM. [Concomitant]
     Active Substance: CEFTRIAXONE SODIUM
     Indication: PYREXIA
     Dosage: 2 G, UNK
     Route: 042
     Dates: start: 20170518, end: 20170522
  35. OMEGACIN [Concomitant]
     Active Substance: BIAPENEM
     Indication: PYREXIA
     Dosage: 0.9 G, UNK
     Route: 042
     Dates: start: 20170911, end: 20170923
  36. DIOVAN [Concomitant]
     Active Substance: VALSARTAN
     Indication: HYPERTENSION
     Dosage: 20 MG, UNK
     Route: 048
  37. DIOVAN [Concomitant]
     Active Substance: VALSARTAN
     Dosage: 40 MG, WHEN BLOOD PRESSURE WAS OVER 120 MMHG
     Route: 048
  38. CELECOX [Concomitant]
     Active Substance: CELECOXIB
     Indication: OSTEOARTHRITIS
     Dosage: 200 MG, UNK
     Route: 048
     Dates: start: 20170522, end: 20170817
  39. EXJADE [Concomitant]
     Active Substance: DEFERASIROX
     Dosage: 750 MG, UNK
     Route: 048
     Dates: start: 20170807, end: 20170816
  40. VITAMIN B12 [Concomitant]
     Active Substance: CYANOCOBALAMIN
     Indication: ANAEMIA
     Dosage: 1 MG, UNK
     Route: 042
     Dates: start: 20170524, end: 20170529
  41. ROPION [Concomitant]
     Active Substance: FLURBIPROFEN AXETIL
     Dosage: 50 MG
     Route: 042
     Dates: start: 20171012, end: 20171012
  42. PARIET [Concomitant]
     Active Substance: RABEPRAZOLE SODIUM
     Indication: GASTRITIS PROPHYLAXIS
     Dosage: 10 MG, UNK
     Route: 048
     Dates: start: 20170518, end: 20170803
  43. POLAPREZINC [Concomitant]
     Active Substance: POLAPREZINC
     Indication: PROPHYLAXIS AGAINST GASTROINTESTINAL ULCER
     Dosage: 150 MG, UNK
     Route: 048
     Dates: start: 20170803
  44. EXJADE [Concomitant]
     Active Substance: DEFERASIROX
     Dosage: 250 MG, UNK
     Route: 048
     Dates: start: 20170629, end: 20170712
  45. MEROPENEM. [Concomitant]
     Active Substance: MEROPENEM
     Indication: PYREXIA
     Dosage: 1.5 G, UNK
     Route: 042
     Dates: start: 20170826, end: 20170910

REACTIONS (12)
  - Pyrexia [Recovered/Resolved]
  - Malaise [Recovered/Resolved]
  - Haemolytic anaemia [Fatal]
  - Iron overload [Not Recovered/Not Resolved]
  - Pruritus [Recovered/Resolved]
  - Myelodysplastic syndrome [Fatal]
  - Pyrexia [Recovered/Resolved]
  - Pyrexia [Recovered/Resolved]
  - Rash [Recovered/Resolved]
  - Pyrexia [Recovered/Resolved]
  - Pruritus [Recovered/Resolved]
  - Osteoarthritis [Recovered/Resolved]

NARRATIVE: CASE EVENT DATE: 20170518
